FAERS Safety Report 6468363-3 (Version None)
Quarter: 2009Q4

REPORT INFORMATION
  Report Type: 
  Country: None (occurrence: None)
  Receive Date: 20091203
  Receipt Date: 20091125
  Transmission Date: 20100525
  Serious: Yes (Hospitalization)
  Sender: FDA-Public Use
  Company Number: GR-RANBAXY-2009RR-29448

PATIENT
  Age: 78 Year
  Sex: Male

DRUGS (6)
  1. ZOLPIDEM [Suspect]
     Dosage: 10 MG, UNK
  2. ZOLPIDEM [Suspect]
     Dosage: 300 MG, UNK
  3. ZOLPIDEM [Suspect]
     Dosage: 200 MG, UNK
  4. ZOLPIDEM [Suspect]
     Dosage: 70 MG, UNK
  5. VALPROIC ACID [Concomitant]
  6. MIRTAZAPINE [Concomitant]

REACTIONS (5)
  - ANXIETY [None]
  - DRUG DEPENDENCE [None]
  - DRUG WITHDRAWAL SYNDROME [None]
  - INSOMNIA [None]
  - IRRITABILITY [None]
